FAERS Safety Report 20505601 (Version 1)
Quarter: 2022Q1

REPORT INFORMATION
  Report Type: Report from Study
  Country: US (occurrence: None)
  Receive Date: 20220223
  Receipt Date: 20220223
  Transmission Date: 20220423
  Serious: Yes (Hospitalization)
  Sender: FDA-Public Use
  Company Number: US-Ultragenyx Pharmaceutical Inc.-US-UGNX-22-00073

PATIENT
  Sex: Male
  Weight: 60.7 kg

DRUGS (4)
  1. DOJOLVI [Suspect]
     Active Substance: TRIHEPTANOIN
     Indication: Very long-chain acyl-coenzyme A dehydrogenase deficiency
     Route: 048
     Dates: start: 202112
  2. CARBAGLU [Concomitant]
     Active Substance: CARGLUMIC ACID
     Indication: Product used for unknown indication
  3. RIBOFLAVIN 5 PHOSPHATE SODIUM [Concomitant]
     Indication: Product used for unknown indication
  4. LEVOCARNITINE [Concomitant]
     Active Substance: LEVOCARNITINE
     Indication: Product used for unknown indication

REACTIONS (4)
  - Ammonia abnormal [Unknown]
  - Metabolic disorder [Unknown]
  - COVID-19 [Unknown]
  - Diarrhoea [Unknown]
